FAERS Safety Report 5611408-0 (Version None)
Quarter: 2008Q1

REPORT INFORMATION
  Report Type: 
  Country: None (occurrence: None)
  Receive Date: 20080201
  Receipt Date: 20080125
  Transmission Date: 20080703
  Serious: Yes (Hospitalization)
  Sender: FDA-Public Use
  Company Number: FR-PFIZER INC-2008008434

PATIENT
  Sex: Female

DRUGS (9)
  1. TAHOR [Suspect]
     Indication: DYSLIPIDAEMIA
     Route: 048
  2. INSULIN HUMAN [Suspect]
     Indication: TYPE 2 DIABETES MELLITUS
     Route: 058
  3. LASILIX [Concomitant]
     Dosage: DAILY DOSE:40MG
  4. LERCAN [Concomitant]
     Dosage: DAILY DOSE:20MG
  5. KARDEGIC [Concomitant]
     Dosage: DAILY DOSE:300MG
  6. LEVOTHYROX [Concomitant]
     Dosage: DAILY DOSE:75MCG
  7. KAYEXALATE [Concomitant]
  8. TANAKAN [Concomitant]
  9. ZOPICLONE [Concomitant]

REACTIONS (2)
  - APHASIA [None]
  - HYPOGLYCAEMIA [None]
